FAERS Safety Report 6696780-5 (Version None)
Quarter: 2010Q2

REPORT INFORMATION
  Report Type: 
  Country: None (occurrence: None)
  Receive Date: 20100426
  Receipt Date: 20100414
  Transmission Date: 20101027
  Serious: Yes (Other)
  Sender: FDA-Public Use
  Company Number: SE-PFIZER INC-2010048087

PATIENT
  Sex: Male

DRUGS (1)
  1. VFEND [Suspect]
     Indication: CEREBRAL ASPERGILLOSIS
     Dosage: HIGH DOSAGE

REACTIONS (3)
  - BONE PAIN [None]
  - OSTEOPENIA [None]
  - PARAESTHESIA [None]
